FAERS Safety Report 7561428-4 (Version None)
Quarter: 2011Q2

REPORT INFORMATION
  Report Type: 
  Country: None (occurrence: None)
  Receive Date: 20110621
  Receipt Date: 20100614
  Transmission Date: 20111010
  Serious: Yes (Other)
  Sender: FDA-Public Use
  Company Number: US-ASTRAZENECA-2010SE21598

PATIENT
  Age: 1751 Day
  Sex: Male
  Weight: 20.4 kg

DRUGS (6)
  1. PULMICORT [Suspect]
     Dosage: GENERIC BUDESONIDE.
     Route: 055
     Dates: start: 20100405
  2. SINGULAIR [Concomitant]
     Indication: HYPERSENSITIVITY
  3. XOPENEX [Concomitant]
     Indication: ASTHMA
     Route: 065
  4. SINGULAIR [Concomitant]
     Indication: ASTHMA
  5. PULMICORT [Suspect]
     Indication: ASTHMA
     Dosage: 0.25 MG/2 ML, TWO TIMES A DAY.
     Route: 055
  6. LORATADINE [Concomitant]
     Indication: HYPERSENSITIVITY
     Route: 065
     Dates: start: 20100304

REACTIONS (1)
  - RASH [None]
